FAERS Safety Report 21745454 (Version 2)
Quarter: 2022Q4

REPORT INFORMATION
  Report Type: Spontaneous
  Country: JP (occurrence: JP)
  Receive Date: 20221219
  Receipt Date: 20221226
  Transmission Date: 20230113
  Serious: Yes (Other)
  Sender: FDA-Public Use
  Company Number: JP-CHUGAI-2022050382

PATIENT
  Age: 76 Year
  Sex: Male

DRUGS (3)
  1. AVASTIN [Suspect]
     Active Substance: BEVACIZUMAB
     Indication: Colon cancer
     Dosage: 5 MILLIGRAM/KILOGRAM, ONCE/3WEEKS, MOST RECENT DOSE ON 14/DEC/2022
     Route: 041
     Dates: start: 20210701
  2. XELODA [Suspect]
     Active Substance: CAPECITABINE
     Indication: Colon cancer
     Dosage: 1000 MILLIGRAM/SQ. METER, ONCE/2WEEKS
     Route: 048
     Dates: start: 20210701
  3. OXALIPLATIN [Concomitant]
     Active Substance: OXALIPLATIN
     Indication: Colon cancer
     Dosage: UNK
     Route: 041
     Dates: start: 20210701

REACTIONS (2)
  - Cardiac failure congestive [Not Recovered/Not Resolved]
  - Platelet count decreased [Unknown]

NARRATIVE: CASE EVENT DATE: 20221214
